FAERS Safety Report 20748245 (Version 1)
Quarter: 2022Q2

REPORT INFORMATION
  Report Type: Other
  Country: US (occurrence: None)
  Receive Date: 20220426
  Receipt Date: 20220426
  Transmission Date: 20220720
  Serious: No
  Sender: FDA-Public Use
  Company Number: US-ROCHE-3081884

PATIENT
  Sex: Female

DRUGS (9)
  1. OCREVUS [Suspect]
     Active Substance: OCRELIZUMAB
     Indication: Relapsing-remitting multiple sclerosis
     Dosage: INITIALLY 300 MG DAY 1 AND DAY 15
     Route: 042
  2. TECFIDERA [Concomitant]
     Active Substance: DIMETHYL FUMARATE
  3. AMPHETAMINE [Concomitant]
     Active Substance: AMPHETAMINE
  4. ASPIRIN [Concomitant]
     Active Substance: ASPIRIN
  5. BACLOFEN [Concomitant]
     Active Substance: BACLOFEN
  6. CYTOMEL [Concomitant]
     Active Substance: LIOTHYRONINE SODIUM
  7. LEVETIRACETAM [Concomitant]
     Active Substance: LEVETIRACETAM
  8. LEXAPROFEN [Concomitant]
  9. LYRICA [Concomitant]
     Active Substance: PREGABALIN

REACTIONS (3)
  - COVID-19 [Unknown]
  - Influenza [Unknown]
  - Fatigue [Unknown]
